FAERS Safety Report 10683800 (Version 4)
Quarter: 2015Q1

REPORT INFORMATION
  Report Type: Spontaneous
  Country: US (occurrence: US)
  Receive Date: 20141230
  Receipt Date: 20150306
  Transmission Date: 20150720
  Serious: Yes (Hospitalization)
  Sender: FDA-Public Use
  Company Number: US-PFIZER INC-2014356871

PATIENT
  Age: 69 Year
  Sex: Female
  Weight: 84 kg

DRUGS (17)
  1. PREMARIN [Suspect]
     Active Substance: ESTROGENS, CONJUGATED
     Indication: VULVOVAGINAL BURNING SENSATION
     Dosage: 1 G (0.625MG/G), 1X/DAY AT BEDTIME
     Route: 067
     Dates: start: 1975, end: 201401
  2. PREMARIN [Suspect]
     Active Substance: ESTROGENS, CONJUGATED
     Indication: ATROPHIC VULVOVAGINITIS
  3. COUMADINE [Concomitant]
     Active Substance: WARFARIN SODIUM
     Dosage: 4 MG, 1X/DAY
     Route: 048
     Dates: start: 20140821
  4. RHINOCORT AQUA [Concomitant]
     Active Substance: BUDESONIDE
     Dosage: 4 DF (2 SPRAYS EACH NOSTRIL), 1X/DAY
     Route: 045
     Dates: start: 20070731
  5. PREMARIN [Suspect]
     Active Substance: ESTROGENS, CONJUGATED
     Indication: HORMONE REPLACEMENT THERAPY
  6. DONEPEZIL HCL [Concomitant]
     Active Substance: DONEPEZIL HYDROCHLORIDE
     Dosage: 10 MG, 1X/DAY
     Route: 048
     Dates: start: 20110216
  7. HYDROCODONE W/ACETAMINOPHEN [Concomitant]
     Active Substance: ACETAMINOPHEN\HYDROCODONE BITARTRATE
     Dosage: 5 MG, 500 MG
     Dates: start: 20120319
  8. ALBUTEROL. [Concomitant]
     Active Substance: ALBUTEROL
     Indication: DYSPNOEA
     Dosage: 1-2 PUFFS (90 MCG/ACT) EVERY 6 HOURS AS NEEDED,
     Dates: start: 20080215
  9. LEVOTHROID [Concomitant]
     Active Substance: LEVOTHYROXINE SODIUM
     Dosage: 112 ?G, DAILY
     Dates: start: 20110216
  10. SERTRALINE HCL [Concomitant]
     Active Substance: SERTRALINE HYDROCHLORIDE
     Dosage: 50 MG, 1X/DAY
     Route: 048
     Dates: start: 20130701
  11. NYSTATIN/TRIAMCINOLONE [Concomitant]
     Dosage: (100000-0.1 UNIT/GM-%), 2X/DAY
     Dates: start: 20140716
  12. TEMOVATE [Concomitant]
     Active Substance: CLOBETASOL PROPIONATE
     Dosage: 0.05 %, DAILY AS NEEDED
     Dates: start: 20100902
  13. ATIVAN [Concomitant]
     Active Substance: LORAZEPAM
     Dosage: 0.5 MG, THREE TIMES A DAY AS NEEDED
     Route: 048
     Dates: start: 20140218
  14. ESTRACE [Suspect]
     Active Substance: ESTRADIOL
     Dosage: 1 MG, UNK
     Route: 048
  15. LITHIUM CARBONATE. [Concomitant]
     Active Substance: LITHIUM CARBONATE
     Indication: BIPOLAR DISORDER
     Dosage: 600 MG, 2X/DAY
     Dates: start: 20071218
  16. PENLAC [Concomitant]
     Active Substance: CICLOPIROX
     Dosage: UNK, 1X/DAY
     Dates: start: 20101025
  17. METHOCARBAMOL. [Concomitant]
     Active Substance: METHOCARBAMOL
     Dosage: 500 MG, 2X/DAY
     Route: 048
     Dates: start: 20120522

REACTIONS (5)
  - Deep vein thrombosis [Recovering/Resolving]
  - Back pain [Unknown]
  - Chest pain [Not Recovered/Not Resolved]
  - Pulmonary embolism [Recovering/Resolving]
  - Dyspnoea [Not Recovered/Not Resolved]

NARRATIVE: CASE EVENT DATE: 201408
